FAERS Safety Report 7478886-6 (Version None)
Quarter: 2011Q2

REPORT INFORMATION
  Report Type: 
  Country: None (occurrence: None)
  Receive Date: 20110513
  Receipt Date: 20110511
  Transmission Date: 20111010
  Serious: Yes (Disabling, Other)
  Sender: FDA-Public Use
  Company Number: GB-PFIZER INC-2011101655

PATIENT
  Age: 29 Year
  Sex: Female

DRUGS (1)
  1. VARENICLINE TARTRATE [Suspect]
     Indication: SMOKING CESSATION THERAPY
     Dosage: 1 MG, 2X/DAY
     Route: 048
     Dates: start: 20110215, end: 20110315

REACTIONS (3)
  - DEPRESSION SUICIDAL [None]
  - AFFECT LABILITY [None]
  - WITHDRAWAL SYNDROME [None]
